FAERS Safety Report 16386584 (Version 1)
Quarter: 2019Q2

REPORT INFORMATION
  Report Type: Spontaneous
  Country: FR (occurrence: FR)
  Receive Date: 20190604
  Receipt Date: 20190604
  Transmission Date: 20190711
  Serious: Yes (Life-Threatening)
  Sender: FDA-Public Use
  Company Number: FR-TEVA-2019-FR-1057086

PATIENT
  Age: 12 Year
  Sex: Female
  Weight: 34.2 kg

DRUGS (11)
  1. FRAGMINE [Concomitant]
     Active Substance: DALTEPARIN SODIUM
  2. ETOPOPHOS [Suspect]
     Active Substance: ETOPOSIDE PHOSPHATE
     Indication: OSTEOSARCOMA
     Route: 042
     Dates: start: 20160722, end: 20160722
  3. ELUDRIL [Concomitant]
  4. RIVOTRIL [Concomitant]
     Active Substance: CLONAZEPAM
  5. LARGACTIL 25 MG/5 ML, SOLUTION INJECTABLE EN AMPOULE [Suspect]
     Active Substance: CHLORPROMAZINE HYDROCHLORIDE
     Indication: PROPHYLAXIS OF NAUSEA AND VOMITING
     Dosage: 25 MILLIGRAM DAILY;
     Route: 042
     Dates: start: 20160720, end: 20160722
  6. MESNA EG 100 MG/ML, SOLUTION INJECTABLE POUR PERFUSION [Concomitant]
     Active Substance: MESNA
  7. GABAPENTINE [Concomitant]
     Active Substance: GABAPENTIN
  8. FORLAX [Concomitant]
     Active Substance: POLYETHYLENE GLYCOL 4000
  9. METHOTREXATE. [Suspect]
     Active Substance: METHOTREXATE
     Indication: OSTEOSARCOMA
     Dates: start: 201602, end: 201606
  10. IFOSFAMIDE EG 40 MG/ML, SOLUTION POUR PERFUSION [Suspect]
     Active Substance: IFOSFAMIDE
     Indication: OSTEOSARCOMA
     Dosage: 3.56 GRAM DAILY;
     Route: 042
     Dates: start: 20160720, end: 20160722
  11. ZOPHREN 2 MG/ML, SOLUTION INJECTABLE EN AMPOULE (I.V.) [Suspect]
     Active Substance: ONDANSETRON
     Indication: PROPHYLAXIS OF NAUSEA AND VOMITING
     Dosage: 16 MILLIGRAM DAILY;
     Route: 042
     Dates: start: 20160720, end: 20160722

REACTIONS (5)
  - Coma [Recovered/Resolved]
  - Anal incontinence [Recovered/Resolved]
  - Encephalopathy [Recovered/Resolved]
  - Vision blurred [Recovering/Resolving]
  - Urinary incontinence [Recovered/Resolved]

NARRATIVE: CASE EVENT DATE: 20160722
